FAERS Safety Report 23741132 (Version 2)
Quarter: 2024Q2

REPORT INFORMATION
  Report Type: Other
  Country: US (occurrence: US)
  Receive Date: 20240415
  Receipt Date: 20240626
  Transmission Date: 20240716
  Serious: No
  Sender: FDA-Public Use
  Company Number: US-APOTEX-2024AP004299

PATIENT

DRUGS (2)
  1. VILAZODONE HYDROCHLORIDE [Suspect]
     Active Substance: VILAZODONE HYDROCHLORIDE
     Indication: Post-traumatic stress disorder
     Dosage: 40 MILLIGRAM, QD
     Route: 065
  2. VILAZODONE HYDROCHLORIDE [Suspect]
     Active Substance: VILAZODONE HYDROCHLORIDE
     Indication: Generalised anxiety disorder

REACTIONS (10)
  - Anxiety [Unknown]
  - Feeling abnormal [Unknown]
  - Malaise [Unknown]
  - Depression [Unknown]
  - Confusional state [Unknown]
  - Disturbance in attention [Unknown]
  - Therapeutic response changed [Unknown]
  - Product substitution issue [Unknown]
  - Irritability [Unknown]
  - Diarrhoea [Unknown]
